FAERS Safety Report 6659964-8 (Version None)
Quarter: 2010Q1

REPORT INFORMATION
  Report Type: 
  Country: None (occurrence: None)
  Receive Date: 20100331
  Receipt Date: 20100323
  Transmission Date: 20100710
  Serious: Yes (Hospitalization)
  Sender: FDA-Public Use
  Company Number: US-BIOGENIDEC-2009BI033039

PATIENT
  Age: 30 Year
  Sex: Male

DRUGS (2)
  1. TYSABRI [Suspect]
     Indication: MULTIPLE SCLEROSIS
     Route: 042
     Dates: start: 20070726, end: 20091002
  2. BACLOFEN [Concomitant]
     Route: 037

REACTIONS (3)
  - COMA [None]
  - OVERDOSE [None]
  - PYREXIA [None]
